FAERS Safety Report 6044431-5 (Version None)
Quarter: 2009Q1

REPORT INFORMATION
  Report Type: 
  Country: None (occurrence: None)
  Receive Date: 20090115
  Receipt Date: 20090115
  Transmission Date: 20090719
  Serious: Yes (Hospitalization)
  Sender: FDA-Public Use
  Company Number: None

PATIENT
  Sex: Male
  Weight: 87.5 kg

DRUGS (17)
  1. OXALIPLATIN [Suspect]
     Indication: BILE DUCT CANCER
     Dosage: 174MG IV 2H IV
     Route: 042
     Dates: start: 20081223
  2. XELODA [Suspect]
     Indication: BILE DUCT CANCER
     Dosage: 4500MG Q8H X 6 ORAL
     Route: 048
     Dates: start: 20090107
  3. SORAFENIB (PROVIDED BY STUDY) [Suspect]
     Dosage: 400MG DAILY ORAL
     Route: 048
     Dates: start: 20081223, end: 20090112
  4. CARAC [Concomitant]
  5. CITALOPRAM HYDROBROMIDE [Concomitant]
  6. DEXAMETHASONE [Concomitant]
  7. DICLOFENAC [Concomitant]
  8. DILAUDID [Concomitant]
  9. GABAPENTIN [Concomitant]
  10. LISINOPRIL [Concomitant]
  11. LORAZEPAM [Concomitant]
  12. OXYCONTIN [Concomitant]
  13. RITALIN [Concomitant]
  14. PRAVASTATIN [Concomitant]
  15. PROCHLORPERAZINE MALEATE [Concomitant]
  16. SENNA [Concomitant]
  17. ZOFRAN ODT [Concomitant]

REACTIONS (4)
  - ASTHENIA [None]
  - DIARRHOEA [None]
  - DYSPNOEA [None]
  - FATIGUE [None]
